FAERS Safety Report 8042665-1 (Version None)
Quarter: 2011Q4

REPORT INFORMATION
  Report Type: 
  Country: None (occurrence: None)
  Receive Date: 20111209
  Receipt Date: 20110928
  Transmission Date: 20120403
  Serious: Yes (Hospitalization)
  Sender: FDA-Public Use
  Company Number: 2011SP045760

PATIENT
  Age: 61 Year
  Sex: Male

DRUGS (3)
  1. VICTRELIS [Suspect]
     Indication: HEPATITIS
     Dates: start: 20110918, end: 20110925
  2. PEG-INTRON [Suspect]
     Indication: HEPATITIS
     Dates: start: 20110814
  3. RIBAVIRIN [Suspect]
     Indication: HEPATITIS
     Dates: start: 20110814

REACTIONS (5)
  - MUSCLE SPASMS [None]
  - VOMITING [None]
  - NAUSEA [None]
  - CONSTIPATION [None]
  - DYSPNOEA [None]
